FAERS Safety Report 4935565-4 (Version None)
Quarter: 2006Q1

REPORT INFORMATION
  Report Type: 
  Country: None (occurrence: None)
  Receive Date: 20060302
  Receipt Date: 20060214
  Transmission Date: 20060701
  Serious: No
  Sender: FDA-Public Use
  Company Number: US200602002469

PATIENT
  Age: 50 Year
  Sex: Female

DRUGS (1)
  1. CYMBALTA [Suspect]

REACTIONS (2)
  - HEPATIC ENZYME INCREASED [None]
  - LIVER FUNCTION TEST ABNORMAL [None]
